FAERS Safety Report 7201466-4 (Version None)
Quarter: 2010Q4

REPORT INFORMATION
  Report Type: 
  Country: None (occurrence: None)
  Receive Date: 20101215
  Receipt Date: 20101202
  Transmission Date: 20110411
  Serious: Yes (Death)
  Sender: FDA-Public Use
  Company Number: TPA2010A05911

PATIENT
  Age: 76 Year
  Sex: Female

DRUGS (7)
  1. ADENURIC (FEBUXOSTAT) [Suspect]
     Indication: GOUT
     Dosage: 80 MG (80 MG,1 IN 1 D) ORAL ; 120 MG (120 MG,1 IN 1 D) ORAL
     Route: 048
     Dates: start: 20101005, end: 20101025
  2. ADENURIC (FEBUXOSTAT) [Suspect]
     Indication: GOUT
     Dosage: 80 MG (80 MG,1 IN 1 D) ORAL ; 120 MG (120 MG,1 IN 1 D) ORAL
     Route: 048
     Dates: start: 20101026
  3. ATORVASTATIN CALCIUM [Concomitant]
     Dosage: 10 MG (10 MG,1 IN 1 D) ORAL
     Route: 048
  4. AMIODARONE (AMIODARONE) [Suspect]
     Dosage: 100 MG (100 MG,1 IN 1 D) ORAL
     Route: 048
  5. PREVISCAN (FLUINDIONE) [Suspect]
     Dosage: 5 MG (5 MG,1 IN 1 D) ORAL
     Route: 048
  6. LERCANIDIPINE [Concomitant]
  7. IRBESARTAN [Concomitant]

REACTIONS (3)
  - CEREBRAL HAEMORRHAGE [None]
  - INTERNATIONAL NORMALISED RATIO INCREASED [None]
  - TRANSAMINASES INCREASED [None]
